FAERS Safety Report 6988678 (Version 11)
Quarter: 2017Q4

REPORT INFORMATION
  Report Type: Report from Study
  Country: JP (occurrence: JP)
  Receive Date: 20090507
  Receipt Date: 20171121
  Transmission Date: 20180321
  Serious: Yes (Death, Life-Threatening, Hospitalization, Other)
  Sender: FDA-Public Use
  Company Number: PHHO2009JP05636

PATIENT
  Age: 67 Year
  Sex: Male
  Weight: 57 kg

DRUGS (31)
  1. SODIUM BICARBONATE. [Concomitant]
     Active Substance: SODIUM BICARBONATE
     Indication: GASTRIC CANCER
     Dosage: UNK
     Route: 065
     Dates: start: 20090427, end: 20090427
  2. UREPEARL [Concomitant]
     Active Substance: UREA
     Indication: RASH
     Dosage: UNK
     Route: 065
     Dates: start: 20090518
  3. XYLOCAINE [Concomitant]
     Active Substance: LIDOCAINE HYDROCHLORIDE
     Indication: GASTRIC CANCER
  4. ZYRTEC [Concomitant]
     Active Substance: CETIRIZINE HYDROCHLORIDE
     Indication: RASH
     Dosage: UNK
     Route: 065
  5. LASIX [Concomitant]
     Active Substance: FUROSEMIDE
     Indication: GASTRIC CANCER
     Dosage: UNK
     Route: 065
  6. NOVAMINE [Concomitant]
     Active Substance: ALANINE\ARGININE\ASPARTIC ACID\GLUTAMIC ACID\GLYCINE\HISTIDINE\ISOLEUCINE\LEUCINE\LYSINE ACETATE\METHIONINE\PHENYLALANINE\PROLINE\SERINE\THREONINE\TRYPTOPHAN\TYROSINE\VALINE
     Indication: GASTRIC CANCER
     Dosage: UNK
     Route: 065
     Dates: start: 20090501, end: 20090512
  7. HYPEN [Concomitant]
     Active Substance: ETODOLAC
     Indication: GASTRIC CANCER
     Dosage: UNK
     Route: 065
     Dates: start: 20090417
  8. EURAX [Concomitant]
     Active Substance: CROTAMITON
     Indication: RASH
     Dosage: UNK
     Route: 065
     Dates: start: 20081020, end: 20090512
  9. SERENACE [Concomitant]
     Active Substance: HALOPERIDOL
     Indication: GASTRIC CANCER
     Dosage: UNK
     Route: 065
  10. TASIGNA [Suspect]
     Active Substance: NILOTINIB
     Indication: CHRONIC MYELOID LEUKAEMIA
     Dosage: 400 MG, BID
     Route: 048
     Dates: start: 20080630, end: 20090414
  11. LOPEMIN                            /07959101/ [Concomitant]
     Active Substance: BERBERINE CHLORIDE\ENTEROCOCCUS FAECALIS\ETHACRIDINE LACTATE\LOPERAMIDE HYDROCHLORIDE
     Indication: GASTRIC CANCER
     Dosage: UNK
     Route: 065
     Dates: start: 20090501, end: 20090512
  12. PREPENON [Concomitant]
     Active Substance: MORPHINE HYDROCHLORIDE
     Indication: GASTRIC CANCER
     Dosage: UNK
     Route: 065
  13. ATARAX [Concomitant]
     Active Substance: HYDROXYZINE HYDROCHLORIDE
     Indication: GASTRIC CANCER
     Dosage: UNK
     Route: 065
  14. XYLOCAINE [Concomitant]
     Active Substance: LIDOCAINE HYDROCHLORIDE
     Indication: LOCAL ANAESTHESIA
     Dosage: UNK
     Route: 065
     Dates: start: 20081208, end: 20081208
  15. URSO [Concomitant]
     Active Substance: URSODIOL
     Indication: GASTRIC CANCER
     Dosage: UNK
     Route: 065
     Dates: start: 20090501, end: 20090501
  16. OXINORM//ORGOTEIN [Concomitant]
     Indication: GASTRIC CANCER
     Dosage: UNK
     Route: 065
     Dates: start: 20090501
  17. RESTAMIN [Concomitant]
     Active Substance: DIPHENHYDRAMINE
     Indication: RASH
     Dosage: UNK
     Route: 065
  18. DECADRON [Concomitant]
     Active Substance: DEXAMETHASONE
     Indication: GASTRIC CANCER
     Dosage: UNK
     Route: 065
     Dates: start: 20090523
  19. HUMULIN R [Concomitant]
     Active Substance: INSULIN HUMAN
     Indication: GASTRIC CANCER
     Dosage: UNK
     Route: 065
  20. FLOMOX//MOXIFLOXACIN HYDROCHLORIDE [Concomitant]
     Indication: OTITIS EXTERNA
     Dosage: UNK
     Route: 065
     Dates: start: 20080825
  21. FLOMOX//MOXIFLOXACIN HYDROCHLORIDE [Concomitant]
     Indication: UPPER RESPIRATORY TRACT INFECTION
  22. POTASSIUM IODIDE W/POVIDONE-IODINE [Concomitant]
     Dosage: UNK
     Route: 065
     Dates: start: 20090105, end: 20090105
  23. PRONASE MS [Concomitant]
     Indication: GASTRIC CANCER
     Dosage: UNK
     Route: 065
     Dates: start: 20090427, end: 20090427
  24. OXYCONTIN [Concomitant]
     Active Substance: OXYCODONE HYDROCHLORIDE
     Indication: GASTRIC CANCER
     Dosage: UNK
     Route: 065
     Dates: start: 20090501
  25. POTASSIUM IODIDE W/POVIDONE-IODINE [Concomitant]
     Indication: LOCAL ANAESTHESIA
     Dosage: UNK
     Route: 065
     Dates: start: 20081202, end: 20081202
  26. BUSCOPAN [Concomitant]
     Active Substance: BUTYLSCOPOLAMINE BROMIDE
     Indication: GASTRIC CANCER
     Dosage: UNK
     Route: 065
  27. SALICYLAMIDE [Concomitant]
     Active Substance: SALICYLAMIDE
     Indication: UPPER RESPIRATORY TRACT INFECTION
     Dosage: UNK
     Route: 065
  28. PROTECADIN [Concomitant]
     Active Substance: LAFUTIDINE
     Indication: PROPHYLAXIS
     Dosage: UNK
     Route: 065
     Dates: start: 20090417, end: 20090512
  29. HIRUDOID [Concomitant]
     Active Substance: GLYCOSAMINOGLYCANS
     Indication: RASH
     Dosage: UNK
     Route: 065
     Dates: start: 20081208, end: 20090512
  30. GLYCERON TAB [Concomitant]
     Indication: GASTRIC CANCER
     Dosage: UNK
     Route: 065
     Dates: start: 20090501, end: 20090514
  31. VITAMEDIN                          /00176001/ [Concomitant]
     Indication: GASTRIC CANCER
     Dosage: UNK
     Route: 065

REACTIONS (11)
  - Fatigue [Fatal]
  - Abdominal pain [Fatal]
  - Renal impairment [Recovered/Resolved]
  - Induration [Fatal]
  - Metastases to liver [Fatal]
  - Second primary malignancy [Fatal]
  - Coma [Fatal]
  - Gastric cancer [Fatal]
  - Decreased appetite [Fatal]
  - Hepatomegaly [Fatal]
  - Hepatic function abnormal [Fatal]

NARRATIVE: CASE EVENT DATE: 20090410
